FAERS Safety Report 21228474 (Version 2)
Quarter: 2022Q4

REPORT INFORMATION
  Report Type: Spontaneous
  Country: SE (occurrence: SE)
  Receive Date: 20220818
  Receipt Date: 20221004
  Transmission Date: 20230112
  Serious: Yes (Hospitalization, Other)
  Sender: FDA-Public Use
  Company Number: SE-AMERICAN REGENT INC-2022002356

PATIENT

DRUGS (1)
  1. FERINJECT [Suspect]
     Active Substance: FERRIC CARBOXYMALTOSE
     Indication: Product used for unknown indication
     Dosage: INJECTED EVERY DAY FOR SIX DAYS STRAIGHT (1000 MG, 1 IN 1 D)
     Dates: start: 202202, end: 2022

REACTIONS (4)
  - Iron overload [Recovered/Resolved]
  - Off label use [Unknown]
  - Product prescribing error [Unknown]
  - Overdose [Unknown]

NARRATIVE: CASE EVENT DATE: 20220201
